FAERS Safety Report 21828103 (Version 1)
Quarter: 2023Q1

REPORT INFORMATION
  Report Type: Spontaneous
  Country: US (occurrence: US)
  Receive Date: 20230106
  Receipt Date: 20230106
  Transmission Date: 20230418
  Serious: Yes (Other)
  Sender: FDA-Public Use
  Company Number: US-TERSERA THERAPEUTICS LLC-2022TRS005763

PATIENT

DRUGS (2)
  1. PRIALT [Suspect]
     Active Substance: ZICONOTIDE ACETATE
     Indication: Post laminectomy syndrome
     Dosage: APPROXIMATELY 3 MCG, QD
     Route: 037
     Dates: start: 20220823
  2. PRIALT [Suspect]
     Active Substance: ZICONOTIDE ACETATE
     Dosage: 6.3 MCG, QD
     Route: 037
     Dates: start: 20221118, end: 20221214

REACTIONS (4)
  - Hallucination, auditory [Unknown]
  - Hallucination, tactile [Unknown]
  - Overdose [Unknown]
  - Product prescribing error [Unknown]
